FAERS Safety Report 4298537-1 (Version None)
Quarter: 2004Q1

REPORT INFORMATION
  Report Type: 
  Country: None (occurrence: None)
  Receive Date: 20040218
  Receipt Date: 20040207
  Transmission Date: 20041129
  Serious: Yes (Life-Threatening)
  Sender: FDA-Public Use
  Company Number: US-BRISTOL-MYERS SQUIBB COMPANY-12502027

PATIENT
  Age: 31 Year
  Sex: Female
  Weight: 170 kg

DRUGS (2)
  1. DEFINITY [Suspect]
     Indication: CARDIAC STRESS TEST
     Dosage: ROUTE: ^INJECTION^  DOSAGE: 0.6-0.8CC
     Dates: start: 20030320, end: 20030320
  2. DOBUTAMINE HCL [Suspect]
     Indication: CARDIAC STRESS TEST
     Dosage: ROUTE: ^INJECTION^
     Dates: start: 20030320, end: 20030320

REACTIONS (1)
  - VENTRICULAR FIBRILLATION [None]
